FAERS Safety Report 22766929 (Version 2)
Quarter: 2024Q1

REPORT INFORMATION
  Report Type: Spontaneous
  Country: US (occurrence: US)
  Receive Date: 20230731
  Receipt Date: 20240229
  Transmission Date: 20240410
  Serious: Yes (Death, Life-Threatening, Hospitalization, Other)
  Sender: FDA-Public Use
  Company Number: US-PFIZER INC-2018305587

PATIENT
  Age: 10 Week

DRUGS (4)
  1. VORICONAZOLE [Suspect]
     Active Substance: VORICONAZOLE
     Indication: Trichosporon infection
     Dosage: DAY 6 - 6 MG/KG/DOSE, 2X/DAY (36 MG) (EVERY 12 H)
     Route: 042
  2. VORICONAZOLE [Suspect]
     Active Substance: VORICONAZOLE
     Indication: Skin infection
     Dosage: DAY 8 - 6 MG/KG/DOSE, 2X/DAY (36 MG) (EVERY 12 H)
     Route: 042
  3. VORICONAZOLE [Suspect]
     Active Substance: VORICONAZOLE
     Dosage: DAY 54 - 5.3 MG/KG/DOSE, 2X/DAY (36 MG) (EVERY 12 H)
     Route: 042
  4. VORICONAZOLE [Suspect]
     Active Substance: VORICONAZOLE
     Dosage: DAY 63 - 7.4 MG/KG/DOSE, 2X/DAY (36 MG) (EVERY 12 H)
     Route: 042

REACTIONS (4)
  - Ischaemic cerebral infarction [Fatal]
  - Treatment failure [Unknown]
  - Seizure [Unknown]
  - Therapeutic response decreased [Unknown]
